FAERS Safety Report 17509174 (Version 1)
Quarter: 2020Q1

REPORT INFORMATION
  Report Type: Spontaneous
  Country: IR (occurrence: IR)
  Receive Date: 20200306
  Receipt Date: 20200306
  Transmission Date: 20200409
  Serious: Yes (Hospitalization)
  Sender: FDA-Public Use
  Company Number: IR-MYLANLABS-2020M1023319

PATIENT
  Age: 77 Year
  Sex: Female

DRUGS (2)
  1. GLIBENCLAMIDE [Concomitant]
     Active Substance: GLYBURIDE
     Indication: DIABETES MELLITUS
     Dosage: UNK
     Route: 065
  2. METHOTREXATE. [Suspect]
     Active Substance: METHOTREXATE
     Indication: RHEUMATOID ARTHRITIS
     Dosage: SHE STARTED TAKING METHOTREXATE TABLET THREE TIMES PER DAY INSTEAD OF THE PRESCRIBED..
     Route: 048

REACTIONS (15)
  - Platelet count decreased [Recovered/Resolved]
  - Toxicity to various agents [Recovered/Resolved]
  - Petechiae [Recovered/Resolved]
  - Oedema mucosal [Recovered/Resolved]
  - Eye pruritus [Recovered/Resolved]
  - Accidental overdose [Recovered/Resolved]
  - Leukopenia [Recovered/Resolved]
  - Stomatitis [Recovered/Resolved]
  - Mouth haemorrhage [Recovered/Resolved]
  - Oral mucosal erythema [Recovered/Resolved]
  - Blood creatinine increased [Recovered/Resolved]
  - Rash [Recovered/Resolved]
  - Conjunctival oedema [Recovered/Resolved]
  - Electrocardiogram T wave inversion [Recovered/Resolved]
  - Inappropriate schedule of product administration [Recovered/Resolved]
